FAERS Safety Report 9351761 (Version 5)
Quarter: 2014Q1

REPORT INFORMATION
  Report Type: Spontaneous
  Country: US (occurrence: US)
  Receive Date: 20130617
  Receipt Date: 20140124
  Transmission Date: 20141002
  Serious: Yes (Hospitalization)
  Sender: FDA-Public Use
  Company Number: US-BIOGENIDEC-2013BI050993

PATIENT
  Age: 48 Year
  Sex: Female

DRUGS (3)
  1. AVONEX [Suspect]
     Indication: MULTIPLE SCLEROSIS
     Route: 030
     Dates: start: 19990201
  2. AVONEX [Suspect]
     Indication: MULTIPLE SCLEROSIS
     Route: 030
  3. AVONEX [Suspect]
     Indication: MULTIPLE SCLEROSIS
     Route: 030

REACTIONS (7)
  - Food allergy [Recovered/Resolved]
  - Hypophagia [Recovered/Resolved]
  - Adjustment disorder [Recovered/Resolved]
  - Depression [Recovered/Resolved]
  - Anxiety [Recovered/Resolved]
  - Vomiting [Recovered/Resolved]
  - Weight decreased [Recovered/Resolved]
